FAERS Safety Report 23601355 (Version 1)
Quarter: 2024Q1

REPORT INFORMATION
  Report Type: Spontaneous
  Country: US (occurrence: US)
  Receive Date: 20240306
  Receipt Date: 20240306
  Transmission Date: 20240410
  Serious: No
  Sender: FDA-Public Use
  Company Number: US-Calliditas-2024CAL00315

PATIENT
  Age: 57 Year
  Sex: Female
  Weight: 50.4 kg

DRUGS (2)
  1. TARPEYO [Suspect]
     Active Substance: BUDESONIDE
     Indication: Haematuria
     Dosage: 16 MG (4 MG CAPSULES) ONCE DAILY
     Route: 048
     Dates: start: 20231019
  2. TARPEYO [Suspect]
     Active Substance: BUDESONIDE
     Indication: Haematuria
     Dosage: 12 MG (4 MG CAPSULES) ONCE DAILY
     Route: 048

REACTIONS (4)
  - Anaemia [Unknown]
  - Swelling face [Unknown]
  - Arthralgia [Unknown]
  - Prescribed underdose [Unknown]
